FAERS Safety Report 24526863 (Version 1)
Quarter: 2024Q4

REPORT INFORMATION
  Report Type: Report from Study
  Country: US (occurrence: US)
  Receive Date: 20241021
  Receipt Date: 20241021
  Transmission Date: 20250114
  Serious: No
  Sender: ROCHE
  Company Number: US-ROCHE-3524271

PATIENT
  Age: 56 Year
  Sex: Male

DRUGS (6)
  1. ZELBORAF [Suspect]
     Active Substance: VEMURAFENIB
     Indication: Hairy cell leukaemia
     Dosage: TAKE 2 TABLETS BY MOUTH 2 TIMES DAILY
     Route: 048
     Dates: start: 20240307
  2. GAZYVA [Suspect]
     Active Substance: OBINUTUZUMAB
     Indication: Hairy cell leukaemia
     Route: 065
  3. LEVAQUIN [Concomitant]
     Active Substance: LEVOFLOXACIN
  4. NOXAFIL [Concomitant]
     Active Substance: POSACONAZOLE
  5. BACTRIM [Concomitant]
     Active Substance: SULFAMETHOXAZOLE\TRIMETHOPRIM
  6. ZOVIRAX [Concomitant]
     Active Substance: ACYCLOVIR

REACTIONS (2)
  - Off label use [Unknown]
  - No adverse event [Unknown]
